FAERS Safety Report 5507658-4 (Version None)
Quarter: 2007Q4

REPORT INFORMATION
  Report Type: 
  Country: None (occurrence: None)
  Receive Date: 20071106
  Receipt Date: 20071026
  Transmission Date: 20080405
  Serious: Yes (Other)
  Sender: FDA-Public Use
  Company Number: FR-JNJFOC-20071007008

PATIENT
  Age: 17 Year
  Sex: Female

DRUGS (2)
  1. OFLOCET [Suspect]
     Indication: EAR INFECTION
     Route: 048
     Dates: start: 20071012, end: 20071014
  2. EFFERALGAN CODEINE [Concomitant]
     Indication: EAR INFECTION
     Route: 048
     Dates: start: 20071012, end: 20071014

REACTIONS (4)
  - ABDOMINAL PAIN LOWER [None]
  - DAYDREAMING [None]
  - HALLUCINATION [None]
  - VERTIGO [None]
